FAERS Safety Report 15126495 (Version 4)
Quarter: 2018Q3

REPORT INFORMATION
  Report Type: Report from Study
  Country: CA (occurrence: CA)
  Receive Date: 20180710
  Receipt Date: 20180723
  Transmission Date: 20181010
  Serious: Yes (Hospitalization)
  Sender: FDA-Public Use
  Company Number: CA-GLAXOSMITHKLINE-CA2018GSK121841

PATIENT
  Sex: Male

DRUGS (3)
  1. PREDNISONE. [Concomitant]
     Active Substance: PREDNISONE
     Indication: PRODUCT USED FOR UNKNOWN INDICATION
     Dosage: UNK
  2. MEPOLIZUMAB [Suspect]
     Active Substance: MEPOLIZUMAB
     Indication: ASTHMA
     Dosage: 100 MG, Z
     Route: 042
  3. SALBUTAMOL [Suspect]
     Active Substance: ALBUTEROL
     Indication: ASTHMA
     Dosage: 200 MG, UNK

REACTIONS (9)
  - Drug dose omission [Unknown]
  - Dyspnoea exertional [Unknown]
  - Drug effect incomplete [Unknown]
  - Wheezing [Unknown]
  - Hypertension [Unknown]
  - Cough [Unknown]
  - Asthma [Unknown]
  - Condition aggravated [Unknown]
  - Productive cough [Recovering/Resolving]
